FAERS Safety Report 8508139-6 (Version None)
Quarter: 2012Q2

REPORT INFORMATION
  Report Type: 
  Country: None (occurrence: None)
  Receive Date: 20120405
  Receipt Date: 20090819
  Transmission Date: 20120825
  Serious: Yes (Hospitalization)
  Sender: FDA-Public Use
  Company Number: PHEH2009US09586

PATIENT
  Age: 76 Year
  Sex: Female

DRUGS (8)
  1. PLAVIX [Concomitant]
  2. METFORMIN HYDROCHLORIDE [Concomitant]
  3. LISINOPRIL [Concomitant]
  4. SIMVASTATIN [Concomitant]
  5. GLYBURIDE [Concomitant]
  6. LEXAPRO [Concomitant]
  7. EXELON [Concomitant]
  8. RECLAST [Suspect]
     Indication: OSTEOPOROSIS
     Dosage: 5 MG, INTRAVENOUS
     Route: 042
     Dates: start: 20090803, end: 20090803

REACTIONS (2)
  - ABDOMINAL PAIN UPPER [None]
  - INFLUENZA LIKE ILLNESS [None]
